FAERS Safety Report 8079682-1 (Version None)
Quarter: 2012Q1

REPORT INFORMATION
  Report Type: 
  Country: None (occurrence: None)
  Receive Date: 20120128
  Receipt Date: 20110830
  Transmission Date: 20120608
  Serious: No
  Sender: FDA-Public Use
  Company Number: US-ABBOTT-11P-163-0845758-00

PATIENT
  Sex: Female

DRUGS (3)
  1. HYDROCODONE BITARTRATE [Concomitant]
     Indication: PAIN
  2. AMBIEN [Concomitant]
     Indication: SLEEP DISORDER THERAPY
  3. HUMIRA [Suspect]
     Indication: CROHN'S DISEASE
     Dosage: (160 MG, LOADING DOSE)
     Dates: start: 20110809, end: 20110809

REACTIONS (2)
  - ABDOMINAL DISTENSION [None]
  - DIARRHOEA [None]
